FAERS Safety Report 9991181 (Version 2)
Quarter: 2014Q2

REPORT INFORMATION
  Report Type: Report from Study
  Country: US (occurrence: US)
  Receive Date: 20140310
  Receipt Date: 20140509
  Transmission Date: 20141212
  Serious: Yes (Other)
  Sender: FDA-Public Use
  Company Number: US-ABBVIE-13P-163-1133964-00

PATIENT
  Age: 19 Year
  Sex: Female

DRUGS (3)
  1. HUMIRA [Suspect]
     Indication: CROHN^S DISEASE
     Route: 058
     Dates: start: 201306, end: 201405
  2. BIRTH CONTROL PILL [Concomitant]
     Indication: CONTRACEPTION
     Dosage: DAILY
  3. DICLOFENAC [Concomitant]
     Indication: CROHN^S DISEASE
     Dosage: 75 MG EVERY DAY

REACTIONS (4)
  - Iron deficiency anaemia [Recovering/Resolving]
  - Crohn^s disease [Recovering/Resolving]
  - Bronchitis [Recovering/Resolving]
  - Pain [Unknown]
